FAERS Safety Report 24360000 (Version 3)
Quarter: 2025Q3

REPORT INFORMATION
  Report Type: Report from Study
  Country: US (occurrence: US)
  Receive Date: 20240925
  Receipt Date: 20250810
  Transmission Date: 20251020
  Serious: Yes (Death)
  Sender: ABBVIE
  Company Number: US-ABBVIE-5935751

PATIENT
  Age: 88 Year
  Sex: Male

DRUGS (1)
  1. VENCLEXTA [Suspect]
     Active Substance: VENETOCLAX
     Indication: Acute myeloid leukaemia
     Dosage: 1 BOTTLE CONTAINING 28 X 100MG TABLETS     TAKE 1 TABLET BY MOUTH ONCE DAILY
     Route: 048
     Dates: start: 2024

REACTIONS (1)
  - Death [Fatal]

NARRATIVE: CASE EVENT DATE: 20240829
